FAERS Safety Report 6467519-3 (Version None)
Quarter: 2009Q4

REPORT INFORMATION
  Report Type: 
  Country: None (occurrence: None)
  Receive Date: 20091127
  Receipt Date: 20091116
  Transmission Date: 20100525
  Serious: Yes (Hospitalization)
  Sender: FDA-Public Use
  Company Number: CIP09003253

PATIENT
  Age: 76 Year
  Sex: Male

DRUGS (15)
  1. FURADANTINE           (NITROFURANTOIN MACROCRYSTALS) [Suspect]
     Dosage: 50 MG SIX TAIMES DAILY, ORAL
     Route: 048
     Dates: start: 20090516, end: 20090523
  2. PAROXETINE HYDROCHLORIDE [Suspect]
     Dosage: 20 MG DAILY, ORAL
     Route: 048
  3. TEMESTA        /00273201/ (LORAZEPAM) [Suspect]
     Dosage: 2.5 MG DAILY, ORAL
     Route: 048
     Dates: end: 20090520
  4. INEXIUM          /01479302/ (ESOMEPRAZOL MAGNESIUM) [Suspect]
     Dosage: 40 MG DAILY, ORAL
     Route: 048
     Dates: end: 20090522
  5. NICARDIPINE HCL [Suspect]
     Dosage: 50 MG TWICE DAILY, ORAL
     Route: 048
  6. DEPAKINE        /0022850/ (VALPROIC ACID) [Suspect]
     Dosage: 500 MG TWICE DAILY, ORAL
     Route: 048
  7. ULTRACET [Suspect]
     Dosage: 2 DF TWICE DAILY
     Dates: end: 20090513
  8. VALIUM [Suspect]
     Dosage: 30 MG DAILY, ORAL
     Route: 048
     Dates: start: 20090512, end: 20090526
  9. DIPIPERON (PIPAMPERONE HYDROCHLORIDE) [Suspect]
     Dosage: 6 DROPS DAILY, ORAL
     Route: 048
     Dates: start: 20090314, end: 20090520
  10. KARDEGIC /00002703/ (ACETYLSALICYLATE LYSINE) [Concomitant]
  11. VITAMIN B1 AND B6 (PYRIDOXINE, THIAMINE) [Concomitant]
  12. POLYETHYLENE GLYCOL [Concomitant]
  13. AUGMENTIN /00756801/ (AMOXICILLIN SODIUM, CLAVULANTE POTASSIUM) [Concomitant]
  14. OFLOCET /00731801/ (OFLOXACIN) [Concomitant]
  15. ACETAMINOPHEN [Concomitant]

REACTIONS (1)
  - FALL [None]
